FAERS Safety Report 19227740 (Version 1)
Quarter: 2021Q2

REPORT INFORMATION
  Report Type: Spontaneous
  Country: US (occurrence: US)
  Receive Date: 20210506
  Receipt Date: 20210506
  Transmission Date: 20210717
  Serious: No
  Sender: FDA-Public Use
  Company Number: US-ROCHE-2699201

PATIENT
  Sex: Male

DRUGS (13)
  1. CELEBREX [Concomitant]
     Active Substance: CELECOXIB
  2. LOSARTAN POTASSIUM. [Concomitant]
     Active Substance: LOSARTAN POTASSIUM
  3. PIOGLITAZONE. [Concomitant]
     Active Substance: PIOGLITAZONE
  4. GLIPIZIDE. [Concomitant]
     Active Substance: GLIPIZIDE
  5. ESBRIET [Suspect]
     Active Substance: PIRFENIDONE
     Indication: IDIOPATHIC PULMONARY FIBROSIS
     Dosage: TAKE 3 CAPSULES (801 MG) BY MOUTH THREE TIMES A DAY WITH MEALS
     Route: 048
  6. NAPROXEN. [Concomitant]
     Active Substance: NAPROXEN
  7. LANTUS [Concomitant]
     Active Substance: INSULIN GLARGINE
     Dosage: 100 UNIT/ML
  8. ASPIRIN. [Concomitant]
     Active Substance: ASPIRIN
  9. ATORVASTATIN [Concomitant]
     Active Substance: ATORVASTATIN
  10. METFORMIN HYDROCHLORIDE. [Concomitant]
     Active Substance: METFORMIN HYDROCHLORIDE
  11. CHLORTHALIDONE. [Concomitant]
     Active Substance: CHLORTHALIDONE
  12. FISH OIL [Concomitant]
     Active Substance: FISH OIL
  13. NOVOLOG [Concomitant]
     Active Substance: INSULIN ASPART
     Dosage: 1000 UNIT/ML

REACTIONS (2)
  - Hypersomnia [Not Recovered/Not Resolved]
  - Product use complaint [Not Recovered/Not Resolved]
